FAERS Safety Report 8310609 (Version 2)
Quarter: 2016Q1

REPORT INFORMATION
  Report Type: Spontaneous
  Country: US (occurrence: US)
  Receive Date: 20111223
  Receipt Date: 20160301
  Transmission Date: 20160526
  Serious: Yes (Hospitalization)
  Sender: FDA-Public Use
  Company Number: US-ASTRAZENECA-2011SE77037

PATIENT
  Age: 31 Year
  Sex: Female

DRUGS (1)
  1. SEROQUEL XR [Suspect]
     Active Substance: QUETIAPINE FUMARATE
     Indication: SLEEP DISORDER
     Route: 048
     Dates: start: 2006

REACTIONS (8)
  - Panic attack [Unknown]
  - Gastroenteritis [Unknown]
  - Attention deficit/hyperactivity disorder [Unknown]
  - Amnesia [Unknown]
  - Anxiety [Unknown]
  - Dehydration [Unknown]
  - Product use issue [Unknown]
  - Off label use [Unknown]
